FAERS Safety Report 7787076-9 (Version None)
Quarter: 2011Q3

REPORT INFORMATION
  Report Type: 
  Country: None (occurrence: None)
  Receive Date: 20110929
  Receipt Date: 20110926
  Transmission Date: 20111222
  Serious: Yes (Hospitalization, Other)
  Sender: FDA-Public Use
  Company Number: JP-ABBOTT-11P-087-0857796-00

PATIENT
  Sex: Female
  Weight: 47.7 kg

DRUGS (9)
  1. HUMIRA [Suspect]
     Indication: CROHN'S DISEASE
     Route: 058
     Dates: start: 20101108, end: 20101108
  2. HUMIRA [Suspect]
     Dates: start: 20101119, end: 20101119
  3. AZATHIOPRINE [Concomitant]
     Indication: CROHN'S DISEASE
     Route: 048
  4. CIDEFERRON [Concomitant]
     Indication: CROHN'S DISEASE
     Dates: start: 20101122, end: 20101210
  5. MIXED AMINO ACID_CARBOHYDRATE_ELECTROLYTE_VITAMIN COMBINED DRUG [Concomitant]
     Indication: PRODUCT USED FOR UNKNOWN INDICATION
     Dates: start: 20101126, end: 20101210
  6. MESALAMINE [Concomitant]
     Indication: CROHN'S DISEASE
     Route: 048
  7. RABEPRAZOLE SODIUM [Concomitant]
     Indication: GASTRITIS PROPHYLAXIS
     Route: 048
  8. BIFIDOBACTERIUM [Concomitant]
     Indication: CROHN'S DISEASE
     Route: 048
  9. HUMIRA [Suspect]
     Dates: start: 20101202

REACTIONS (2)
  - INTESTINAL OBSTRUCTION [None]
  - CROHN'S DISEASE [None]
